FAERS Safety Report 24174086 (Version 2)
Quarter: 2024Q3

REPORT INFORMATION
  Report Type: Spontaneous
  Country: JP (occurrence: JP)
  Receive Date: 20240805
  Receipt Date: 20240829
  Transmission Date: 20241017
  Serious: Yes (Other)
  Sender: PFIZER
  Company Number: JP-PFIZER INC-PV202400100752

PATIENT
  Age: 43 Year
  Sex: Male
  Weight: 71 kg

DRUGS (3)
  1. LORBRENA [Suspect]
     Active Substance: LORLATINIB
     Indication: Non-small cell lung cancer
     Dosage: 100 MG, DAILY
     Route: 048
     Dates: start: 20240622
  2. ROSUVASTATIN [Suspect]
     Active Substance: ROSUVASTATIN\ROSUVASTATIN CALCIUM
     Indication: Hypercholesterolaemia
     Dosage: 2.5 MG, 1X/DAY AFTER BREAKFAST
     Route: 048
     Dates: start: 20240710, end: 202407
  3. ROSUVASTATIN [Suspect]
     Active Substance: ROSUVASTATIN\ROSUVASTATIN CALCIUM
     Indication: Hypertriglyceridaemia

REACTIONS (6)
  - Myalgia [Recovering/Resolving]
  - Blood creatine phosphokinase increased [Recovered/Resolved]
  - Glomerular filtration rate decreased [Recovered/Resolved]
  - Rhabdomyolysis [Recovering/Resolving]
  - Hypercholesterolaemia [Recovering/Resolving]
  - Hypertriglyceridaemia [Recovering/Resolving]

NARRATIVE: CASE EVENT DATE: 20240706
